FAERS Safety Report 7500395-6 (Version None)
Quarter: 2011Q2

REPORT INFORMATION
  Report Type: 
  Country: None (occurrence: None)
  Receive Date: 20110524
  Receipt Date: 20110222
  Transmission Date: 20111010
  Serious: No
  Sender: FDA-Public Use
  Company Number: US-BRISTOL-MYERS SQUIBB COMPANY-15510043

PATIENT
  Age: 87 Year
  Sex: Female

DRUGS (7)
  1. COREG [Concomitant]
  2. GLYBURIDE [Suspect]
     Indication: DIABETES MELLITUS
     Dosage: FOR YEARS
  3. FUROSEMIDE [Concomitant]
  4. VITAMIN D [Concomitant]
  5. WARFARIN SODIUM [Concomitant]
  6. ONGLYZA [Suspect]
     Indication: DIABETES MELLITUS
  7. LISINOPRIL [Concomitant]

REACTIONS (3)
  - EYE HAEMORRHAGE [None]
  - DRUG INEFFECTIVE [None]
  - JOINT SWELLING [None]
